FAERS Safety Report 8826525 (Version 1)
Quarter: 2012Q4

REPORT INFORMATION
  Report Type: 
  Country: US (occurrence: US)
  Receive Date: 20121005
  Receipt Date: 20121005
  Transmission Date: 20130627
  Serious: Yes (Hospitalization, Other)
  Sender: FDA-Public Use
  Company Number: US-COVIDIEN/TYCO HEALTHCARE/MALLINCKRODT-T201203538

PATIENT
  Age: 61 Year
  Sex: Male

DRUGS (13)
  1. EXALGO EXTENDED RELEASE [Suspect]
     Indication: PRODUCT USED FOR UNKNOWN INDICATION
     Dosage: unk
  2. BENZODIAZEPINE DERIVATIVES [Concomitant]
  3. OTHER TYPE OF SEDATIVE/HYPNOTIC/ANTI-ANXIETY OR ANTI-PSYCHOTIC [Concomitant]
  4. ANTIHYPERLIPIDEMIC [Concomitant]
  5. PREGABALIN [Concomitant]
  6. BUPROPION [Concomitant]
  7. TRAZODONE [Concomitant]
  8. ALFUZOSIN [Concomitant]
  9. PERCOCET                           /00446701/ [Concomitant]
  10. ATYPICAL ANTIPSYCHOTIC [Concomitant]
  11. BENZTROPINE [Concomitant]
  12. LORAZEPAM [Concomitant]
  13. HEPARIN [Concomitant]

REACTIONS (5)
  - Accidental overdose [Unknown]
  - Loss of consciousness [Recovered/Resolved]
  - Mental status changes [Recovered/Resolved]
  - Hypotension [Recovered/Resolved]
  - Miosis [Recovered/Resolved]
